FAERS Safety Report 22149237 (Version 1)
Quarter: 2023Q1

REPORT INFORMATION
  Report Type: Spontaneous
  Country: US (occurrence: US)
  Receive Date: 20230329
  Receipt Date: 20230329
  Transmission Date: 20230417
  Serious: No
  Sender: FDA-Public Use
  Company Number: US-drreddys-SPO/USA/23/0160563

PATIENT
  Age: 17 Year
  Sex: Female

DRUGS (1)
  1. ZENATANE [Suspect]
     Active Substance: ISOTRETINOIN
     Indication: Acne
     Dosage: RMA ISSUE DATE: 12 AUGUST 2022 02:50:18 PM, 23 NOVEMBER 2022 02:10:21 PM, 23 DECEMBER 2022 10:19:39

REACTIONS (1)
  - Gastrointestinal disorder [Unknown]
